FAERS Safety Report 16149169 (Version 1)
Quarter: 2019Q2

REPORT INFORMATION
  Report Type: Spontaneous
  Country: ES (occurrence: ES)
  Receive Date: 20190402
  Receipt Date: 20190402
  Transmission Date: 20190711
  Serious: Yes (Death)
  Sender: FDA-Public Use
  Company Number: ES-BAYER-2019-064754

PATIENT
  Age: 89 Year
  Sex: Male

DRUGS (1)
  1. ULTRAVIST [Suspect]
     Active Substance: IOPROMIDE
     Indication: COMPUTERISED TOMOGRAM
     Dosage: 130 ML, UNK
     Dates: start: 20190329, end: 20190329

REACTIONS (3)
  - Cardiac arrest [Fatal]
  - Haematemesis [Fatal]
  - Faecal vomiting [Fatal]

NARRATIVE: CASE EVENT DATE: 20190329
